FAERS Safety Report 6388995-0 (Version None)
Quarter: 2009Q4

REPORT INFORMATION
  Report Type: 
  Country: None (occurrence: None)
  Receive Date: 20091001
  Receipt Date: 20090921
  Transmission Date: 20100525
  Serious: Yes (Other)
  Sender: FDA-Public Use
  Company Number: 2009SP026634

PATIENT
  Age: 75 Year
  Sex: Female

DRUGS (5)
  1. CLARITIN [Suspect]
     Indication: HYPERSENSITIVITY
     Dosage: ; PO
     Route: 048
     Dates: start: 20090601
  2. CLARITIN [Suspect]
     Indication: NASAL CONGESTION
     Dosage: ; PO
     Route: 048
     Dates: start: 20090601
  3. CLARITIN [Suspect]
     Indication: SNEEZING
     Dosage: ; PO
     Route: 048
     Dates: start: 20090601
  4. AFRIN [Concomitant]
  5. NASAL PREPARATIONS [Concomitant]

REACTIONS (4)
  - BLOOD PRESSURE DIASTOLIC DECREASED [None]
  - CEREBROVASCULAR ACCIDENT [None]
  - SNEEZING [None]
  - SOMNOLENCE [None]
